FAERS Safety Report 4653762-2 (Version None)
Quarter: 2005Q2

REPORT INFORMATION
  Report Type: 
  Country: None (occurrence: None)
  Receive Date: 20050504
  Receipt Date: 20050427
  Transmission Date: 20051028
  Serious: Yes (Death, Hospitalization, Other)
  Sender: FDA-Public Use
  Company Number: 163-20785-05030675

PATIENT
  Age: 73 Year
  Sex: Male
  Weight: 47 kg

DRUGS (15)
  1. THALOMID [Suspect]
     Indication: MULTIPLE MYELOMA
     Dosage: 100 MG, QHS, ORAL
     Route: 048
     Dates: start: 20041030
  2. MELPHALAN (MELPHALAN) [Suspect]
     Indication: MULTIPLE MYELOMA
     Dosage: 224 MG, 1 DAY, INTRAVENOUS
     Route: 042
     Dates: start: 20050120, end: 20050120
  3. DEXAMETHASONE [Suspect]
     Indication: MULTIPLE MYELOMA
     Dosage: 20 MG, 4 DAYS Q 21 DAYS, ORAL
     Route: 048
     Dates: start: 20041030
  4. VELCADE [Suspect]
     Indication: MULTIPLE MYELOMA
     Dates: start: 20041030
  5. CISPLATIN [Suspect]
     Indication: MULTIPLE MYELOMA
     Dates: start: 20041030
  6. ADRIAMYCIN PFS [Suspect]
     Indication: MULTIPLE MYELOMA
     Dates: start: 20041030
  7. CYCLOPHOSPHAMIDE [Suspect]
     Indication: MULTIPLE MYELOMA
     Dates: start: 20041030
  8. ETOPOSIDE [Suspect]
     Indication: MULTIPLE MYELOMA
     Dates: start: 20041030
  9. FAMVIR [Concomitant]
  10. RANITIDINE [Concomitant]
  11. LISINOPRIL [Concomitant]
  12. CLONIDINE [Concomitant]
  13. OXYCODONE CR (OXYCODONE) [Concomitant]
  14. MAGNESIUM (MAGNESIUM) [Concomitant]
  15. LOVENOX [Concomitant]

REACTIONS (26)
  - ANAEMIA [None]
  - ARTHRALGIA [None]
  - ATRIOVENTRICULAR BLOCK SECOND DEGREE [None]
  - COMPUTERISED TOMOGRAM ABNORMAL [None]
  - DEEP VEIN THROMBOSIS [None]
  - DEPRESSION [None]
  - DIABETES MELLITUS INSULIN-DEPENDENT [None]
  - DIASTOLIC DYSFUNCTION [None]
  - DYSPHAGIA [None]
  - EMPHYSEMATOUS BULLA [None]
  - FEBRILE NEUTROPENIA [None]
  - FEELING COLD [None]
  - HYPERTENSION [None]
  - METASTASES TO BONE [None]
  - MUCOSAL INFLAMMATION [None]
  - PANCREATITIS CHRONIC [None]
  - PHARYNGOLARYNGEAL PAIN [None]
  - POSITRON EMISSION TOMOGRAM ABNORMAL [None]
  - POST PROCEDURAL COMPLICATION [None]
  - RENAL FAILURE [None]
  - SCAR [None]
  - SINUS BRADYCARDIA [None]
  - SPINAL OSTEOARTHRITIS [None]
  - STEM CELL TRANSPLANT [None]
  - THROMBOCYTOPENIA [None]
  - VENTRICULAR SEPTAL DEFECT [None]
